FAERS Safety Report 4848591-0 (Version None)
Quarter: 2005Q4

REPORT INFORMATION
  Report Type: 
  Country: None (occurrence: None)
  Receive Date: 20051206
  Receipt Date: 20020214
  Transmission Date: 20060501
  Serious: Yes (Hospitalization)
  Sender: FDA-Public Use
  Company Number: 530#5#2002-00004

PATIENT
  Age: 77 Year
  Sex: Male

DRUGS (16)
  1. ALPROSTADIL [Suspect]
     Indication: INTERMITTENT CLAUDICATION
     Dosage: 1.5 TIMES 60 UG PER WEEK
     Route: 041
     Dates: start: 20010514, end: 20010709
  2. ALTERNATIVE DRUG (DOSE UNKNOWN), UNKNOWN (BLINDED DRUG) (ALTERNATIVE D [Suspect]
     Indication: INTERMITTENT CLAUDICATION
     Dosage: SEE IMAGE
     Route: 048
     Dates: start: 20010514, end: 20010514
  3. ALTERNATIVE DRUG (DOSE UNKNOWN), UNKNOWN (BLINDED DRUG) (ALTERNATIVE D [Suspect]
     Indication: INTERMITTENT CLAUDICATION
     Dosage: SEE IMAGE
     Route: 048
     Dates: start: 20010515, end: 20010709
  4. MOLSIDOMINE (MOLSIDOMINE) [Concomitant]
  5. FELODIPINE [Concomitant]
  6. ASPIRIN [Concomitant]
  7. CAPTOPRIL AND HYDROCHLOROTHIAZIDE (CAPTOPRIL, HYDROCHLOROTHIAZIDE) [Concomitant]
  8. MOXONIDINE (MOXONIDINE) [Concomitant]
  9. SIMVASTATIN [Concomitant]
  10. BORNAPRINE (BORNAPRINE) [Concomitant]
  11. LEVODOPA /BENSERAZIDE (BENSERAZIDE HYDROCHLORIDE, LEVODOPA) [Concomitant]
  12. ALLOPURINOL [Concomitant]
  13. HYDROCHLOROTHIAZIDE [Concomitant]
  14. BISOPROLOL (BISOPROLOL) [Concomitant]
  15. FOSINOPRIL SODIUM [Concomitant]
  16. PRAVASTATIN [Concomitant]

REACTIONS (17)
  - ABDOMINAL PAIN UPPER [None]
  - ANGINA PECTORIS [None]
  - ARTERIOSCLEROSIS CORONARY ARTERY [None]
  - ASTHENIA [None]
  - ATRIAL FIBRILLATION [None]
  - CORONARY ARTERY DISEASE [None]
  - CORONARY ARTERY OCCLUSION [None]
  - CORONARY ARTERY STENOSIS [None]
  - DISORIENTATION [None]
  - FEMORAL ARTERY OCCLUSION [None]
  - HAEMATEMESIS [None]
  - PNEUMONIA [None]
  - POST PROCEDURAL COMPLICATION [None]
  - PSYCHOMOTOR RETARDATION [None]
  - RENAL CYST [None]
  - SCAR [None]
  - VENTRICULAR HYPERTROPHY [None]
